FAERS Safety Report 4885225-3 (Version None)
Quarter: 2005Q4

REPORT INFORMATION
  Report Type: 
  Country: None (occurrence: None)
  Receive Date: 20051216
  Receipt Date: 20051104
  Transmission Date: 20060501
  Serious: No
  Sender: FDA-Public Use
  Company Number: BDI-007700

PATIENT
  Age: 65 Year
  Sex: Female

DRUGS (1)
  1. MULTIHANCE [Suspect]
     Dosage: 20 ML ONCE IV
     Route: 042
     Dates: start: 20051103, end: 20051103

REACTIONS (3)
  - DIZZINESS [None]
  - FEELING HOT [None]
  - TONGUE DISORDER [None]
